FAERS Safety Report 24747803 (Version 1)
Quarter: 2024Q4

REPORT INFORMATION
  Report Type: Spontaneous
  Country: US (occurrence: US)
  Receive Date: 20241218
  Receipt Date: 20241218
  Transmission Date: 20250115
  Serious: Yes (Other)
  Sender: SANOFI AVENTIS
  Company Number: US-DialogSolutions-SAAVPROD-PI713873-C1

PATIENT
  Age: 66 Year
  Sex: Male

DRUGS (1)
  1. ANTI-THYMOCYTE GLOBULIN (RABBIT) NOS [Suspect]
     Active Substance: LAPINE T-LYMPHOCYTE IMMUNE GLOBULIN
     Indication: Renal transplant
     Dosage: UNK

REACTIONS (7)
  - Lymphocyte count decreased [Unknown]
  - Cutaneous mucormycosis [Recovering/Resolving]
  - Pain [Recovering/Resolving]
  - Skin lesion [Recovering/Resolving]
  - Pain of skin [Recovering/Resolving]
  - Rales [Recovering/Resolving]
  - Skin necrosis [Recovering/Resolving]
